FAERS Safety Report 14583059 (Version 2)
Quarter: 2018Q2

REPORT INFORMATION
  Report Type: Spontaneous
  Country: US (occurrence: US)
  Receive Date: 20180228
  Receipt Date: 20180504
  Transmission Date: 20180711
  Serious: Yes (Other)
  Sender: FDA-Public Use
  Company Number: US-BAYER-2018-033581

PATIENT
  Age: 26 Year
  Sex: Female
  Weight: 208.8 kg

DRUGS (22)
  1. CELEBREX [Concomitant]
     Active Substance: CELECOXIB
  2. REQUIP [Concomitant]
     Active Substance: ROPINIROLE HYDROCHLORIDE
  3. NEUROTON [Concomitant]
  4. TYLENOL [Concomitant]
     Active Substance: ACETAMINOPHEN
  5. GADAVIST [Suspect]
     Active Substance: GADOBUTROL
     Indication: NUCLEAR MAGNETIC RESONANCE IMAGING
     Dosage: 15 ML, ONCE
     Dates: start: 20171108, end: 20171108
  6. BUSPAR [Concomitant]
     Active Substance: BUSPIRONE HYDROCHLORIDE
  7. METFORMIN [Concomitant]
     Active Substance: METFORMIN HYDROCHLORIDE
  8. NORCO [Concomitant]
     Active Substance: ACETAMINOPHEN\HYDROCODONE BITARTRATE
  9. HYDROCHLOROTHIAZIDE. [Concomitant]
     Active Substance: HYDROCHLOROTHIAZIDE
  10. LISINOPRIL. [Concomitant]
     Active Substance: LISINOPRIL
  11. LIPITOR [Concomitant]
     Active Substance: ATORVASTATIN CALCIUM
  12. PERCOCET [Concomitant]
     Active Substance: ACETAMINOPHEN\OXYCODONE HYDROCHLORIDE
  13. SYNTHROID [Concomitant]
     Active Substance: LEVOTHYROXINE SODIUM
  14. AMOXIL [Concomitant]
     Active Substance: AMOXICILLIN
  15. TOPAMAX [Concomitant]
     Active Substance: TOPIRAMATE
  16. DESYREL [Concomitant]
     Active Substance: TRAZODONE HYDROCHLORIDE
  17. ALBUTEROL. [Concomitant]
     Active Substance: ALBUTEROL
  18. NORVASC [Concomitant]
     Active Substance: AMLODIPINE BESYLATE
  19. CLONAZEPAM. [Concomitant]
     Active Substance: CLONAZEPAM
  20. LEXAPRO [Concomitant]
     Active Substance: ESCITALOPRAM OXALATE
  21. GADAVIST [Suspect]
     Active Substance: GADOBUTROL
     Indication: OSTEOMYELITIS
     Dosage: 20 ML, ONCE
     Route: 042
     Dates: start: 20180214, end: 20180214
  22. INSULIN [Concomitant]
     Active Substance: INSULIN NOS

REACTIONS (2)
  - Glomerular filtration rate decreased [Recovered/Resolved]
  - Blood creatinine increased [Recovered/Resolved]

NARRATIVE: CASE EVENT DATE: 20180214
